FAERS Safety Report 7912372-1 (Version None)
Quarter: 2011Q4

REPORT INFORMATION
  Report Type: 
  Country: None (occurrence: None)
  Receive Date: 20111114
  Receipt Date: 20111101
  Transmission Date: 20120403
  Serious: Yes (Hospitalization, Other)
  Sender: FDA-Public Use
  Company Number: IE-MEDIMMUNE-MEDI-0013834

PATIENT
  Sex: Female

DRUGS (5)
  1. FERROUS SULFATE TAB [Concomitant]
  2. CHLOROTHIAZIDE [Concomitant]
  3. KAPSOVIT [Concomitant]
  4. SYNAGIS [Suspect]
     Route: 030
     Dates: start: 20111004, end: 20111004
  5. SPIRONOLACTONE [Concomitant]

REACTIONS (2)
  - RESPIRATORY SYNCYTIAL VIRUS TEST NEGATIVE [None]
  - COUGH [None]
